FAERS Safety Report 12825253 (Version 1)
Quarter: 2016Q4

REPORT INFORMATION
  Report Type: Spontaneous
  Country: JP (occurrence: JP)
  Receive Date: 20161007
  Receipt Date: 20161007
  Transmission Date: 20170207
  Serious: Yes (Hospitalization)
  Sender: FDA-Public Use
  Company Number: JP-BAYER-2016-171966

PATIENT
  Age: 23 Year
  Sex: Female
  Weight: 50.98 kg

DRUGS (5)
  1. CEFCAPENE PIVOXIL HYDROCHLORIDE [Concomitant]
     Active Substance: CEFCAPENE PIVOXIL HYDROCHLORIDE
     Dosage: UNK
     Route: 048
     Dates: start: 20160105, end: 20160115
  2. LOXONIN [Concomitant]
     Active Substance: LOXOPROFEN SODIUM
     Dosage: UNK
     Route: 048
     Dates: start: 20160105, end: 20160115
  3. REBAMIPIDE [Concomitant]
     Active Substance: REBAMIPIDE
     Dosage: DAILY DOSE 1 DF
     Route: 048
     Dates: start: 20160105, end: 20160115
  4. YAZ [Suspect]
     Active Substance: DROSPIRENONE\ETHINYL ESTRADIOL
     Indication: DYSMENORRHOEA
  5. YAZ [Suspect]
     Active Substance: DROSPIRENONE\ETHINYL ESTRADIOL
     Indication: ADENOMYOSIS
     Dosage: 1 DF, QD
     Route: 048
     Dates: start: 2010, end: 20160115

REACTIONS (5)
  - Dizziness [Recovering/Resolving]
  - Subarachnoid haemorrhage [Recovering/Resolving]
  - Intracranial venous sinus thrombosis [Recovering/Resolving]
  - Nervous system disorder [Recovering/Resolving]
  - Headache [Recovering/Resolving]

NARRATIVE: CASE EVENT DATE: 20160115
